FAERS Safety Report 6927939-7 (Version None)
Quarter: 2010Q3

REPORT INFORMATION
  Report Type: 
  Country: None (occurrence: None)
  Receive Date: 20100816
  Receipt Date: 20100816
  Transmission Date: 20110219
  Serious: Yes (Disabling)
  Sender: FDA-Public Use
  Company Number: None

PATIENT
  Age: 55 Year
  Sex: Female

DRUGS (1)
  1. HYDRALAZINE HCL [Suspect]
     Indication: HYPERTENSION
     Dosage: 10MG PRN IV
     Route: 042

REACTIONS (4)
  - ANXIETY [None]
  - DYSPNOEA [None]
  - HYPERTENSION [None]
  - TACHYCARDIA [None]
